FAERS Safety Report 6357701-8 (Version None)
Quarter: 2009Q3

REPORT INFORMATION
  Report Type: 
  Country: None (occurrence: None)
  Receive Date: 20090916
  Receipt Date: 20090911
  Transmission Date: 20100115
  Serious: Yes (Death, Hospitalization)
  Sender: FDA-Public Use
  Company Number: BR-BRISTOL-MYERS SQUIBB COMPANY-14777999

PATIENT
  Age: 54 Year
  Sex: Female

DRUGS (2)
  1. ORENCIA [Suspect]
     Route: 042
     Dates: end: 20090401
  2. INFLIXIMAB [Suspect]
     Dosage: TAKEN 2 INF

REACTIONS (4)
  - DRUG INEFFECTIVE [None]
  - LUNG INFECTION PSEUDOMONAL [None]
  - SEPSIS [None]
  - STRESS FRACTURE [None]
